FAERS Safety Report 15201008 (Version 1)
Quarter: 2018Q3

REPORT INFORMATION
  Report Type: Spontaneous
  Country: US (occurrence: US)
  Receive Date: 20180627
  Receipt Date: 20180627
  Transmission Date: 20181010
  Serious: No
  Sender: FDA-Public Use
  Company Number: None

PATIENT
  Age: 68 Year
  Sex: Female

DRUGS (2)
  1. CAPECITABINE 500MG WESTWARD [Suspect]
     Active Substance: CAPECITABINE
     Indication: RHEUMATOID ARTHRITIS
     Route: 048
     Dates: start: 20180224, end: 20180620
  2. CAPECITABINE 150MG WESTWARD [Suspect]
     Active Substance: CAPECITABINE
     Indication: COLON CANCER
     Route: 048
     Dates: start: 20180224, end: 20180620

REACTIONS (1)
  - Gastric ulcer [None]

NARRATIVE: CASE EVENT DATE: 20180620
